FAERS Safety Report 5004601-1 (Version None)
Quarter: 2006Q2

REPORT INFORMATION
  Report Type: 
  Country: None (occurrence: None)
  Receive Date: 20060516
  Receipt Date: 20060516
  Transmission Date: 20061013
  Serious: Yes (Other)
  Sender: FDA-Public Use
  Company Number: None

PATIENT
  Age: 65 Year
  Sex: Female
  Weight: 72.5755 kg

DRUGS (2)
  1. FLUTICASONE SPR NASAL SPRAY 50 MCG PENN LABRATORIES UK [Suspect]
     Indication: HYPERSENSITIVITY
     Dosage: 2 SPRAYS INTO EACH NOSTRIL DAILY NASAL
     Route: 045
     Dates: start: 20060412, end: 20060415
  2. FLUTICASONE SPR NASAL SPRAY 50 MCG PENN LABRATORIES UK [Suspect]
     Indication: HYPERSENSITIVITY
     Dosage: 2 SPRAYS INTO EACH NOSTRIL DAILY NASAL
     Route: 045
     Dates: start: 20060512, end: 20060513

REACTIONS (5)
  - EYE PRURITUS [None]
  - HYPOAESTHESIA ORAL [None]
  - SWOLLEN TONGUE [None]
  - THERAPEUTIC RESPONSE UNEXPECTED WITH DRUG SUBSTITUTION [None]
  - THROAT IRRITATION [None]
